FAERS Safety Report 25339533 (Version 2)
Quarter: 2025Q2

REPORT INFORMATION
  Report Type: Report from Study
  Country: DE (occurrence: DE)
  Receive Date: 20250521
  Receipt Date: 20250523
  Transmission Date: 20250716
  Serious: Yes (Death, Hospitalization)
  Sender: SANOFI AVENTIS
  Company Number: DE-ALCEDIS-DUPIL1744

PATIENT
  Age: 67 Year
  Sex: Male
  Weight: 73 kg

DRUGS (2)
  1. DUPILUMAB [Suspect]
     Active Substance: DUPILUMAB
     Indication: Asthma
     Route: 058
     Dates: start: 20230320, end: 20230320
  2. DUPILUMAB [Suspect]
     Active Substance: DUPILUMAB
     Dosage: UNK, QOW, EVERY OTHER WEEK
     Route: 058
     Dates: end: 20250120

REACTIONS (1)
  - Bronchitis [Fatal]

NARRATIVE: CASE EVENT DATE: 20240520
